FAERS Safety Report 5219976-8 (Version None)
Quarter: 2007Q1

REPORT INFORMATION
  Report Type: 
  Country: None (occurrence: None)
  Receive Date: 20070124
  Receipt Date: 20070124
  Transmission Date: 20070707
  Serious: Yes (Other)
  Sender: FDA-Public Use
  Company Number: None

PATIENT
  Age: 83 Year
  Sex: Male
  Weight: 87.1 kg

DRUGS (6)
  1. LOVASTATIN [Suspect]
  2. CALCITRIOL [Concomitant]
  3. AMOXICILLIN [Concomitant]
  4. ASPIRIN [Concomitant]
  5. FOSINOPRIL NA [Concomitant]
  6. OMEPRAZOLE [Concomitant]

REACTIONS (1)
  - MYALGIA [None]
